FAERS Safety Report 4724472-8 (Version None)
Quarter: 2005Q3

REPORT INFORMATION
  Report Type: 
  Country: None (occurrence: None)
  Receive Date: 20050721
  Receipt Date: 20050708
  Transmission Date: 20060218
  Serious: Yes (Hospitalization)
  Sender: FDA-Public Use
  Company Number: SUS1-2005-00538

PATIENT
  Age: 31 Year
  Sex: Male

DRUGS (1)
  1. PENTASA [Suspect]
     Indication: COLITIS ULCERATIVE
     Dosage: 1500 MG DAILY, ORAL
     Route: 048
     Dates: start: 20020508, end: 20040328

REACTIONS (2)
  - CRYPTOGENIC ORGANIZING PNEUMONIA [None]
  - EOSINOPHILIC PNEUMONIA [None]
